FAERS Safety Report 5132087-5 (Version None)
Quarter: 2006Q4

REPORT INFORMATION
  Report Type: 
  Country: None (occurrence: None)
  Receive Date: 20061017
  Receipt Date: 20061006
  Transmission Date: 20070319
  Serious: Yes (Hospitalization)
  Sender: FDA-Public Use
  Company Number: 25284

PATIENT
  Age: 71 Year
  Sex: Male

DRUGS (8)
  1. NIASPAN [Suspect]
     Indication: BLOOD CHOLESTEROL INCREASED
     Dosage: 500 MG QHS PO
     Route: 048
     Dates: start: 20060301
  2. LEVAQUIN [Suspect]
     Indication: CELLULITIS
     Dosage: 500 MG QD PO
     Route: 048
     Dates: start: 20060401, end: 20060401
  3. COMBIVENT /GFR/ [Concomitant]
  4. AVAPRO [Concomitant]
  5. QUININE SULFATE [Concomitant]
  6. ZOCOR [Concomitant]
  7. TOPROL-XL [Concomitant]
  8. TAGAMET [Concomitant]

REACTIONS (13)
  - ARRHYTHMIA [None]
  - ATELECTASIS [None]
  - BLOOD PRESSURE ABNORMAL [None]
  - CELLULITIS [None]
  - CHRONIC OBSTRUCTIVE PULMONARY DISEASE [None]
  - DYSPNOEA [None]
  - HEART RATE DECREASED [None]
  - HYPERSENSITIVITY [None]
  - LOSS OF CONSCIOUSNESS [None]
  - LUNG INFILTRATION [None]
  - PNEUMONIA ASPIRATION [None]
  - PULMONARY OEDEMA [None]
  - RESPIRATORY FAILURE [None]
